FAERS Safety Report 8349606-8 (Version None)
Quarter: 2012Q2

REPORT INFORMATION
  Report Type: 
  Country: None (occurrence: None)
  Receive Date: 20120510
  Receipt Date: 20120502
  Transmission Date: 20120825
  Serious: Yes (Hospitalization, Other)
  Sender: FDA-Public Use
  Company Number: US-BAYER-2011-108091

PATIENT
  Age: 40 Year
  Sex: Female
  Weight: 75 kg

DRUGS (16)
  1. TYLENOL ARTHRITIS [Concomitant]
     Dosage: 650 MG, UNK
     Route: 048
  2. VERAPAMIL [Concomitant]
  3. PREDNISONE TAB [Concomitant]
  4. YASMIN [Suspect]
     Indication: OVARIAN CYST
  5. NEURONTIN [Concomitant]
  6. XANAX [Concomitant]
     Dosage: 0.25 MG ONE TO TWO TABLETS TWICE DAILY
     Route: 048
  7. KETOROLAC TROMETHAMINE [Concomitant]
  8. YASMIN [Suspect]
     Indication: CONTRACEPTION
     Dosage: UNK
     Route: 048
     Dates: start: 20001201, end: 20070401
  9. PRILOSEC [Concomitant]
  10. MOTRIN [Concomitant]
  11. KLONOPIN [Concomitant]
  12. MORPHINE [Concomitant]
  13. IBUPROFEN (ADVIL) [Concomitant]
     Dosage: TWO TABLETS TWICE DAILY AS NEEDED
  14. ASPIRIN [Concomitant]
  15. INDERAL [Concomitant]
  16. PROPRANOLOL [Concomitant]

REACTIONS (7)
  - VASOCONSTRICTION [None]
  - CEREBROVASCULAR ACCIDENT [None]
  - DEEP VEIN THROMBOSIS [None]
  - PAIN [None]
  - PULMONARY EMBOLISM [None]
  - DEPRESSION [None]
  - ANXIETY [None]
